FAERS Safety Report 7831389-9 (Version None)
Quarter: 2011Q3

REPORT INFORMATION
  Report Type: 
  Country: None (occurrence: None)
  Receive Date: 20110901
  Receipt Date: 20110103
  Transmission Date: 20111222
  Serious: Yes (Other)
  Sender: FDA-Public Use
  Company Number: 262186USA

PATIENT
  Sex: Female

DRUGS (1)
  1. METOCLOPRAMIDE [Suspect]
     Dosage: 10 MG

REACTIONS (4)
  - DYSTONIA [None]
  - TREMOR [None]
  - EXCESSIVE EYE BLINKING [None]
  - BLEPHAROSPASM [None]
